FAERS Safety Report 5033637-X (Version None)
Quarter: 2006Q2

REPORT INFORMATION
  Report Type: 
  Country: None (occurrence: None)
  Receive Date: 20060623
  Receipt Date: 20060517
  Transmission Date: 20061013
  Serious: Yes (Death)
  Sender: FDA-Public Use
  Company Number: KR-SANOFI-SYNTHELABO-F01200601240

PATIENT
  Sex: Female
  Weight: 46 kg

DRUGS (9)
  1. FENTANYL [Concomitant]
     Route: 042
     Dates: start: 20051219, end: 20060517
  2. OXYCODONE HCL [Concomitant]
     Indication: BACK PAIN
     Route: 042
     Dates: start: 20051223, end: 20060517
  3. PHENIRAMINE [Concomitant]
     Route: 042
     Dates: start: 20051219, end: 20060517
  4. DOLASETRON [Concomitant]
     Dates: start: 20051219, end: 20060517
  5. METOCLOPRAMIDE [Concomitant]
     Route: 042
     Dates: start: 20051219, end: 20060517
  6. GEMCITABINE [Suspect]
     Route: 042
     Dates: start: 20060511, end: 20060511
  7. EUCARBON [Concomitant]
     Indication: CONSTIPATION
     Route: 048
     Dates: start: 20060605, end: 20060613
  8. TRAMADOL HCL [Concomitant]
     Indication: BACK PAIN
     Route: 048
     Dates: start: 20060603, end: 20060613
  9. ELOXATIN [Suspect]
     Route: 042
     Dates: start: 20060511, end: 20060511

REACTIONS (3)
  - MALIGNANT NEOPLASM PROGRESSION [None]
  - PANCREATIC CARCINOMA METASTATIC [None]
  - PNEUMONIA FUNGAL [None]
